FAERS Safety Report 19474976 (Version 1)
Quarter: 2021Q2

REPORT INFORMATION
  Report Type: Spontaneous
  Country: US (occurrence: US)
  Receive Date: 20210630
  Receipt Date: 20210630
  Transmission Date: 20210717
  Serious: Yes (Other)
  Sender: FDA-Public Use
  Company Number: US-PINNACLE BIOLOGICS INC-2021-CLI-000012

PATIENT
  Age: 65 Year
  Sex: Female

DRUGS (2)
  1. PHOTOFRIN [Suspect]
     Active Substance: PORFIMER SODIUM
     Indication: ADENOCARCINOMA
     Dosage: UNK
     Route: 042
  2. PHOTOFRIN [Suspect]
     Active Substance: PORFIMER SODIUM
     Indication: OBSTRUCTIVE AIRWAYS DISORDER

REACTIONS (1)
  - Atrial fibrillation [Unknown]
